FAERS Safety Report 6165456-5 (Version None)
Quarter: 2009Q2

REPORT INFORMATION
  Report Type: 
  Country: None (occurrence: None)
  Receive Date: 20090423
  Receipt Date: 20090417
  Transmission Date: 20091009
  Serious: Yes (Hospitalization)
  Sender: FDA-Public Use
  Company Number: US-B.I. PHARMACEUTICALS,INC./RIDGEFIELD-2009-BP-03638BP

PATIENT
  Age: 72 Year
  Sex: Male

DRUGS (8)
  1. FLOMAX [Suspect]
     Indication: BLOOD PRESSURE INCREASED
     Dosage: .4MG
  2. BENICAR [Suspect]
  3. NEXIUM [Concomitant]
     Dosage: 40MG
  4. ASPIRIN [Concomitant]
  5. VITAMIN D COMPLEX [Concomitant]
  6. XANAX [Concomitant]
  7. RED YEAST RICE [Concomitant]
  8. FLAXSEED [Concomitant]

REACTIONS (1)
  - BLOOD PRESSURE DECREASED [None]
